FAERS Safety Report 4961381-3 (Version None)
Quarter: 2006Q2

REPORT INFORMATION
  Report Type: 
  Country: None (occurrence: None)
  Receive Date: 20060403
  Receipt Date: 20051207
  Transmission Date: 20061013
  Serious: Yes (Death, Hospitalization, Other)
  Sender: FDA-Public Use
  Company Number: US-MERCK-0512USA01375

PATIENT
  Age: 59 Year
  Sex: Male
  Weight: 125 kg

DRUGS (8)
  1. VIOXX [Suspect]
     Indication: ARTHRITIS
     Route: 048
     Dates: end: 20030228
  2. PLAVIX [Concomitant]
     Route: 065
  3. DIOVAN [Concomitant]
     Route: 065
  4. THYROID [Concomitant]
     Route: 065
  5. ASPIRIN [Concomitant]
     Route: 065
  6. ZESTORETIC [Concomitant]
     Route: 065
  7. ROBAXIN [Concomitant]
     Route: 065
  8. CLARINEX [Concomitant]
     Route: 065

REACTIONS (12)
  - BRAIN OEDEMA [None]
  - CARDIO-RESPIRATORY ARREST [None]
  - CEREBELLAR HAEMORRHAGE [None]
  - CEREBROVASCULAR ACCIDENT [None]
  - ERECTILE DYSFUNCTION [None]
  - HYPERTENSION [None]
  - HYPOGONADISM [None]
  - MYOCARDIAL ISCHAEMIA [None]
  - OEDEMA [None]
  - PARAESTHESIA [None]
  - TIC [None]
  - TRANSIENT ISCHAEMIC ATTACK [None]
